FAERS Safety Report 9342439 (Version 11)
Quarter: 2014Q1

REPORT INFORMATION
  Report Type: Report from Study
  Country: DE (occurrence: DE)
  Receive Date: 20130611
  Receipt Date: 20140131
  Transmission Date: 20141002
  Serious: Yes (Hospitalization, Other)
  Sender: FDA-Public Use
  Company Number: PHHY2013DE059057

PATIENT
  Sex: Male

DRUGS (12)
  1. AMN107 [Suspect]
     Indication: CHRONIC MYELOID LEUKAEMIA
     Dosage: 600 MG, PER DAY
     Route: 048
     Dates: start: 20120308
  2. AMN107 [Suspect]
     Dosage: 300 MG, DAILY
     Route: 048
     Dates: start: 20130920
  3. ALLOPURINOL [Concomitant]
     Indication: HYPERURICAEMIA
     Dosage: 300 MG, PER DAY
     Dates: start: 20120227
  4. SIMVASTATIN [Concomitant]
     Indication: HYPERCHOLESTEROLAEMIA
     Dosage: 20 MG, PER DAY
     Dates: start: 2012
  5. FURORESE [Concomitant]
     Indication: HYPERTENSION
     Dosage: 40 MG, PER DAY
     Dates: start: 20130302
  6. ASS 200 [Concomitant]
     Indication: CEREBROVASCULAR ACCIDENT
     Dosage: 100 MG, PER DAY
  7. BISOPROLOL [Concomitant]
     Indication: HYPERTENSION
     Dosage: 2.5 MG, PER DAY
  8. OMEPRAZOLE [Concomitant]
     Indication: GASTRIC DISORDER
     Dosage: 20 MG, PER DAY
     Dates: start: 20120308
  9. TIZANIDINE [Concomitant]
     Indication: BACK PAIN
  10. OXYCODONE [Concomitant]
     Indication: BACK PAIN
     Dosage: 20 MG, PER DAY
  11. NOVAMINSULFON [Concomitant]
     Indication: BACK PAIN
     Dosage: 20 DRP, TID
     Dates: start: 20130514, end: 20130716
  12. SYREA [Concomitant]
     Dosage: 500 MG, DAILY
     Dates: start: 20120308

REACTIONS (8)
  - Cerebrovascular accident [Recovered/Resolved with Sequelae]
  - Basal ganglia infarction [Recovered/Resolved with Sequelae]
  - Speech disorder [Not Recovered/Not Resolved]
  - Peripheral arterial occlusive disease [Recovered/Resolved]
  - Pain in extremity [Recovered/Resolved]
  - Gamma-glutamyltransferase increased [Recovered/Resolved]
  - Back pain [Not Recovered/Not Resolved]
  - Insomnia [Recovered/Resolved]
